FAERS Safety Report 9032840 (Version 2)
Quarter: 2013Q3

REPORT INFORMATION
  Report Type: Spontaneous
  Country: US (occurrence: US)
  Receive Date: 20130128
  Receipt Date: 20130717
  Transmission Date: 20140515
  Serious: No
  Sender: FDA-Public Use
  Company Number: US-BIOGENIDEC-2013BI006436

PATIENT
  Age: 53 Year
  Sex: Female

DRUGS (3)
  1. TYSABRI [Suspect]
     Indication: MULTIPLE SCLEROSIS
     Route: 042
     Dates: start: 20111024
  2. AVONEX [Concomitant]
     Indication: MULTIPLE SCLEROSIS
     Route: 030
  3. AMPYRA [Concomitant]
     Indication: MULTIPLE SCLEROSIS

REACTIONS (10)
  - Ankle fracture [Recovered/Resolved]
  - Accident [Recovered/Resolved]
  - Musculoskeletal pain [Not Recovered/Not Resolved]
  - Back pain [Recovered/Resolved]
  - Fall [Recovered/Resolved]
  - Panic attack [Recovered/Resolved]
  - Joint dislocation [Not Recovered/Not Resolved]
  - Joint swelling [Not Recovered/Not Resolved]
  - Vomiting [Recovered/Resolved]
  - Pyrexia [Recovered/Resolved]
